FAERS Safety Report 9032294 (Version 2)
Quarter: 2013Q4

REPORT INFORMATION
  Report Type: Report from Study
  Country: CH (occurrence: CH)
  Receive Date: 20130122
  Receipt Date: 20131202
  Transmission Date: 20140711
  Serious: Yes (Death, Hospitalization, Other)
  Sender: FDA-Public Use
  Company Number: CH-MILLENNIUM PHARMACEUTICALS, INC.-2010-05638

PATIENT
  Sex: 0

DRUGS (5)
  1. VELCADE [Suspect]
     Indication: MANTLE CELL LYMPHOMA
     Dosage: 2.2 MG, UNK
     Route: 042
     Dates: start: 20101014, end: 20101114
  2. VIRACEPT [Suspect]
     Indication: MANTLE CELL LYMPHOMA
     Dosage: 2500 MG, UNK
     Route: 048
     Dates: start: 20101007, end: 20101107
  3. ESOMEPRAZOL                        /01479302/ [Concomitant]
     Dosage: 40 MG, UNK
     Route: 048
     Dates: start: 20090526
  4. ALLOPURINOL [Concomitant]
     Dosage: 300 MG, UNK
     Route: 048
     Dates: start: 20101028
  5. ONDANSETRON [Concomitant]
     Dosage: 4 MG, UNK
     Route: 048
     Dates: start: 20101028

REACTIONS (2)
  - Thrombotic stroke [Fatal]
  - Pneumonia [Recovered/Resolved with Sequelae]
